FAERS Safety Report 5374557-0 (Version None)
Quarter: 2007Q2

REPORT INFORMATION
  Report Type: 
  Country: None (occurrence: None)
  Receive Date: 20070629
  Receipt Date: 20070621
  Transmission Date: 20071010
  Serious: Yes (Hospitalization, Other)
  Sender: FDA-Public Use
  Company Number: US-AMGEN-STX229493

PATIENT
  Sex: Male

DRUGS (1)
  1. ENBREL [Suspect]
     Indication: RHEUMATOID ARTHRITIS
     Route: 058
     Dates: start: 20011128

REACTIONS (7)
  - DIZZINESS [None]
  - FALL [None]
  - GASTROENTERITIS VIRAL [None]
  - HOSPITALISATION [None]
  - MUSCULAR WEAKNESS [None]
  - TRAUMATIC HAEMATOMA [None]
  - URINARY TRACT INFECTION [None]
